FAERS Safety Report 8520572-5 (Version None)
Quarter: 2012Q3

REPORT INFORMATION
  Report Type: 
  Country: None (occurrence: None)
  Receive Date: 20120719
  Receipt Date: 20120713
  Transmission Date: 20120928
  Serious: Yes (Other)
  Sender: FDA-Public Use
  Company Number: VE-PFIZER INC-2012170923

PATIENT
  Sex: Female

DRUGS (1)
  1. LYRICA [Suspect]
     Dosage: UNK

REACTIONS (7)
  - SYNCOPE [None]
  - SOMNOLENCE [None]
  - TACHYCARDIA [None]
  - NERVOUSNESS [None]
  - HYPOTHYROIDISM [None]
  - PARKINSONISM [None]
  - TREMOR [None]
